FAERS Safety Report 7396768-5 (Version None)
Quarter: 2011Q2

REPORT INFORMATION
  Report Type: 
  Country: None (occurrence: None)
  Receive Date: 20110406
  Receipt Date: 20110330
  Transmission Date: 20111010
  Serious: Yes (Other)
  Sender: FDA-Public Use
  Company Number: US-SANOFI-AVENTIS-2011SA020160

PATIENT
  Sex: Male

DRUGS (15)
  1. TRICOR [Concomitant]
  2. SINGULAIR [Concomitant]
  3. LISINOPRIL [Concomitant]
  4. LOVAZA [Concomitant]
  5. ISOSORBIDE MONONITRATE [Concomitant]
  6. SIMVASTATIN [Concomitant]
  7. GLYBURIDE [Concomitant]
  8. ACTOS [Concomitant]
  9. METHADONE HCL [Concomitant]
  10. METOPROLOL [Concomitant]
  11. GLYCERYL TRINITRATE [Concomitant]
     Route: 060
  12. EFFEXOR XR [Concomitant]
  13. PLAVIX [Suspect]
     Route: 065
     Dates: start: 20080101
  14. JANUVIA [Concomitant]
  15. ASPIRIN [Concomitant]

REACTIONS (1)
  - VASCULAR OCCLUSION [None]
